FAERS Safety Report 9231332 (Version 1)
Quarter: 2013Q2

REPORT INFORMATION
  Report Type: Spontaneous
  Country: US (occurrence: US)
  Receive Date: 20130415
  Receipt Date: 20130415
  Transmission Date: 20140414
  Serious: No
  Sender: FDA-Public Use
  Company Number: US-009507513-1304USA005258

PATIENT
  Sex: Male

DRUGS (1)
  1. AZASITE [Suspect]
     Dosage: 1 GTT, QD
     Route: 047
     Dates: start: 201302

REACTIONS (3)
  - Incorrect dose administered [Unknown]
  - Product quality issue [Unknown]
  - No adverse event [Unknown]
